FAERS Safety Report 5718747-3 (Version None)
Quarter: 2008Q2

REPORT INFORMATION
  Report Type: 
  Country: None (occurrence: None)
  Receive Date: 20080423
  Receipt Date: 20080411
  Transmission Date: 20081010
  Serious: Yes (Life-Threatening, Hospitalization)
  Sender: FDA-Public Use
  Company Number: 2007BI019043

PATIENT
  Age: 48 Year
  Sex: Female
  Weight: 77.4 kg

DRUGS (8)
  1. NATALIZUMAB (NATALIZUMAB) [Suspect]
     Indication: MULTIPLE SCLEROSIS
     Dosage: 300 MG; QM; IV
     Route: 042
     Dates: start: 20070813, end: 20070910
  2. MARVELON [Concomitant]
  3. RAMIPRIL [Concomitant]
  4. DICLOFENAC [Concomitant]
  5. EVENING PRIMROSE [Concomitant]
  6. VITAMIN CAP [Concomitant]
  7. FISH OIL [Concomitant]
  8. OXYBUTYNIN CHLORIDE [Concomitant]

REACTIONS (9)
  - ANAPHYLACTIC SHOCK [None]
  - BLOOD PRESSURE INCREASED [None]
  - BODY TEMPERATURE DECREASED [None]
  - CHEST DISCOMFORT [None]
  - DRUG SPECIFIC ANTIBODY PRESENT [None]
  - FALL [None]
  - FEELING HOT [None]
  - MALAISE [None]
  - RESPIRATORY ARREST [None]
